FAERS Safety Report 25034845 (Version 1)
Quarter: 2025Q1

REPORT INFORMATION
  Report Type: Spontaneous
  Country: US (occurrence: US)
  Receive Date: 20250304
  Receipt Date: 20250304
  Transmission Date: 20250409
  Serious: Yes (Death, Hospitalization, Other)
  Sender: AMGEN
  Company Number: US-AMGEN-USASP2025040954

PATIENT

DRUGS (1)
  1. PREDNISONE [Suspect]
     Active Substance: PREDNISONE
     Indication: Rheumatoid arthritis
     Route: 065

REACTIONS (27)
  - Cardiovascular disorder [Fatal]
  - Hypertension [Unknown]
  - Acute coronary syndrome [Unknown]
  - Cardiac arrest [Unknown]
  - Cardiac failure congestive [Unknown]
  - Deep vein thrombosis [Unknown]
  - Myocardial infarction [Unknown]
  - Pulmonary embolism [Unknown]
  - Cerebrovascular accident [Unknown]
  - Transient ischaemic attack [Unknown]
  - Angina unstable [Unknown]
  - Ventricular arrhythmia [Unknown]
  - Atrial fibrillation [Unknown]
  - Angina pectoris [Unknown]
  - Syncope [Unknown]
  - Acute cardiac event [Unknown]
  - Cardiomyopathy [Unknown]
  - Peripheral arterial occlusive disease [Unknown]
  - Peripheral revascularisation [Unknown]
  - Arrhythmia supraventricular [Unknown]
  - Coronary revascularisation [Unknown]
  - Bradycardia [Unknown]
  - Conduction disorder [Unknown]
  - Coronary artery disease [Unknown]
  - Orthostatic hypotension [Unknown]
  - Interventional procedure [Unknown]
  - Aortic aneurysm [Unknown]
